FAERS Safety Report 10206517 (Version 1)
Quarter: 2014Q2

REPORT INFORMATION
  Report Type: Spontaneous
  Country: US (occurrence: US)
  Receive Date: 20140530
  Receipt Date: 20140530
  Transmission Date: 20141212
  Serious: No
  Sender: FDA-Public Use
  Company Number: US-GLAXOSMITHKLINE-A1022360A

PATIENT
  Age: 56 Year
  Sex: Female

DRUGS (3)
  1. FLOLAN [Suspect]
     Indication: PRODUCT USED FOR UNKNOWN INDICATION
     Dosage: 22NGKM CONTINUOUS
     Route: 042
     Dates: start: 20111202
  2. PEPTO BISMOL [Concomitant]
  3. WARFARIN [Concomitant]

REACTIONS (1)
  - Nausea [Unknown]
